FAERS Safety Report 18040875 (Version 2)
Quarter: 2020Q4

REPORT INFORMATION
  Report Type: Spontaneous
  Country: DE (occurrence: DE)
  Receive Date: 20200717
  Receipt Date: 20201007
  Transmission Date: 20210113
  Serious: Yes (Other)
  Sender: FDA-Public Use
  Company Number: NVSC2020DE198695

PATIENT
  Age: 72 Year
  Sex: Male

DRUGS (2)
  1. AVASTIN [Concomitant]
     Active Substance: BEVACIZUMAB
     Indication: NEOVASCULAR AGE-RELATED MACULAR DEGENERATION
     Dosage: 2.5/ 0.1 MG/ML (APPLIKATION: INTRAVITREAL)
     Route: 047
     Dates: start: 20160118, end: 20200113
  2. BEOVU [Suspect]
     Active Substance: BROLUCIZUMAB-DBLL
     Indication: NEOVASCULAR AGE-RELATED MACULAR DEGENERATION
     Dosage: 120 MG/ML 0.05 ML EINMALIGE ANWENDUNG (APPLIKATION: INTRAVITREAL)
     Route: 047

REACTIONS (2)
  - Keratitis [Not Recovered/Not Resolved]
  - Iridocyclitis [Not Recovered/Not Resolved]

NARRATIVE: CASE EVENT DATE: 20200504
